FAERS Safety Report 7184137-2 (Version None)
Quarter: 2010Q4

REPORT INFORMATION
  Report Type: 
  Country: None (occurrence: None)
  Receive Date: 20101123
  Receipt Date: 20100914
  Transmission Date: 20110411
  Serious: No
  Sender: FDA-Public Use
  Company Number: 017799

PATIENT
  Sex: Female

DRUGS (4)
  1. CIMZIA [Suspect]
     Indication: CROHN'S DISEASE
     Dosage: (400 MG1X/MONTH SUBCUTANEOUS)
     Route: 058
     Dates: start: 20091120
  2. ASCAL /00800002/ [Concomitant]
  3. HUMIRA [Concomitant]
  4. REMICADE [Concomitant]

REACTIONS (2)
  - UPPER RESPIRATORY TRACT INFECTION [None]
  - WEIGHT DECREASED [None]
